FAERS Safety Report 8563953-6 (Version None)
Quarter: 2012Q3

REPORT INFORMATION
  Report Type: 
  Country: None (occurrence: None)
  Receive Date: 20120803
  Receipt Date: 20120730
  Transmission Date: 20120928
  Serious: Yes (Hospitalization, Other)
  Sender: FDA-Public Use
  Company Number: PHHY2012BR066623

PATIENT
  Age: 76 Year
  Sex: Female
  Weight: 50 kg

DRUGS (3)
  1. AMLODOPINE BESYLATE AND VALSARTAN [Suspect]
     Indication: HYPERTENSION
     Dosage: 1 DF, QD
     Route: 048
     Dates: start: 20070101
  2. SLOW-K [Concomitant]
     Indication: MUSCLE SPASMS
     Dosage: 600 MG, UNK
     Route: 048
  3. LEXOTAN [Concomitant]

REACTIONS (11)
  - UPPER LIMB FRACTURE [None]
  - THERMAL BURN [None]
  - CONFUSIONAL STATE [None]
  - WEIGHT DECREASED [None]
  - FALL [None]
  - SINGLE FUNCTIONAL KIDNEY [None]
  - ANEURYSM [None]
  - SCAR [None]
  - DYSENTERY [None]
  - BACK PAIN [None]
  - ABDOMINAL PAIN [None]
